FAERS Safety Report 16140895 (Version 1)
Quarter: 2019Q2

REPORT INFORMATION
  Report Type: Spontaneous
  Country: GB (occurrence: GB)
  Receive Date: 20190401
  Receipt Date: 20190401
  Transmission Date: 20190711
  Serious: Yes (Other)
  Sender: FDA-Public Use
  Company Number: GB-PFIZER INC-2019136047

PATIENT
  Age: 11 Month
  Sex: Male

DRUGS (2)
  1. CYTARABINE. [Suspect]
     Active Substance: CYTARABINE
     Indication: XANTHOGRANULOMA
     Dosage: UNK
  2. CLADRIBINE. [Suspect]
     Active Substance: CLADRIBINE
     Indication: XANTHOGRANULOMA
     Dosage: UNK

REACTIONS (1)
  - Seizure [Unknown]
